FAERS Safety Report 8439701-7 (Version None)
Quarter: 2012Q2

REPORT INFORMATION
  Report Type: 
  Country: None (occurrence: None)
  Receive Date: 20120323
  Receipt Date: 20111220
  Transmission Date: 20120825
  Serious: Yes (Other)
  Sender: FDA-Public Use
  Company Number: 163-21880-11053818

PATIENT
  Age: 72 Year
  Sex: Female

DRUGS (3)
  1. LENALIDOMIDE [Suspect]
     Indication: MULTIPLE MYELOMA
     Dosage: 25 MG, 3 WEEKS ON, 1 WEEK OFF, PO,  25 MG, 1 IN 1 D, PO
     Route: 048
     Dates: start: 20111001
  2. LENALIDOMIDE [Suspect]
     Indication: MULTIPLE MYELOMA
     Dosage: 25 MG, 3 WEEKS ON, 1 WEEK OFF, PO,  25 MG, 1 IN 1 D, PO
     Route: 048
     Dates: start: 20110101, end: 20110501
  3. ASPIRIN [Concomitant]

REACTIONS (1)
  - DEEP VEIN THROMBOSIS [None]
